FAERS Safety Report 19462169 (Version 1)
Quarter: 2021Q2

REPORT INFORMATION
  Report Type: Spontaneous
  Country: US (occurrence: US)
  Receive Date: 20210625
  Receipt Date: 20210625
  Transmission Date: 20210717
  Serious: No
  Sender: FDA-Public Use
  Company Number: US-ASTELLAS-2021US022037

PATIENT
  Sex: Male

DRUGS (3)
  1. PADCEV [Suspect]
     Active Substance: ENFORTUMAB VEDOTIN-EJFV
     Indication: BLADDER CANCER
     Route: 065
     Dates: start: 20210520
  2. PADCEV [Suspect]
     Active Substance: ENFORTUMAB VEDOTIN-EJFV
     Route: 065
     Dates: start: 20210603
  3. PADCEV [Suspect]
     Active Substance: ENFORTUMAB VEDOTIN-EJFV
     Route: 065
     Dates: start: 20210527

REACTIONS (8)
  - Skin toxicity [Unknown]
  - Dysphagia [Unknown]
  - Fatigue [Unknown]
  - Rash [Unknown]
  - Oropharyngeal pain [Unknown]
  - Appetite disorder [Unknown]
  - Bone pain [Unknown]
  - Oral pain [Unknown]

NARRATIVE: CASE EVENT DATE: 202106
